FAERS Safety Report 24540525 (Version 1)
Quarter: 2024Q4

REPORT INFORMATION
  Report Type: Spontaneous
  Country: US (occurrence: None)
  Receive Date: 20241023
  Receipt Date: 20241023
  Transmission Date: 20250115
  Serious: Yes (unspecified)
  Sender: Public
  Company Number: None

PATIENT
  Age: 68 Year
  Sex: Female
  Weight: 58.97 kg

DRUGS (1)
  1. LEVOFLOXACIN [Suspect]
     Active Substance: LEVOFLOXACIN
     Indication: Urinary tract infection
     Dosage: OTHER QUANTITY : 1 DOSAGE ;?FREQUENCY : DAILY;?
     Dates: start: 20240918, end: 20240924

REACTIONS (19)
  - Chills [None]
  - Tendon pain [None]
  - Dysphonia [None]
  - Throat tightness [None]
  - Dyspnoea [None]
  - Dysphagia [None]
  - Thirst [None]
  - Hunger [None]
  - Pallor [None]
  - Cardiac flutter [None]
  - Hyperhidrosis [None]
  - Pollakiuria [None]
  - Vision blurred [None]
  - Tremor [None]
  - Anxiety [None]
  - Chest pain [None]
  - Abdominal pain upper [None]
  - Back pain [None]
  - Tinnitus [None]

NARRATIVE: CASE EVENT DATE: 20241018
